FAERS Safety Report 5409613-1 (Version None)
Quarter: 2007Q3

REPORT INFORMATION
  Report Type: 
  Country: None (occurrence: None)
  Receive Date: 20070807
  Receipt Date: 20070711
  Transmission Date: 20080115
  Serious: Yes (Other)
  Sender: FDA-Public Use
  Company Number: 2007US001756

PATIENT
  Age: 13 Month

DRUGS (1)
  1. PROGRAF [Suspect]
     Indication: LIVER TRANSPLANT REJECTION

REACTIONS (1)
  - HAEMOLYTIC ANAEMIA [None]
